FAERS Safety Report 8824613 (Version 4)
Quarter: 2013Q2

REPORT INFORMATION
  Report Type: Report from Study
  Country: CA (occurrence: CA)
  Receive Date: 20121004
  Receipt Date: 20130606
  Transmission Date: 20140414
  Serious: Yes (Hospitalization, Other)
  Sender: FDA-Public Use
  Company Number: PHHY2012CA053598

PATIENT
  Sex: Male

DRUGS (6)
  1. EXJADE [Suspect]
     Indication: HAEMOLYTIC ANAEMIA
     Dosage: 1000 MG, QD
     Route: 048
     Dates: end: 201209
  2. EXJADE [Suspect]
     Dosage: 1500 MG, QD
     Route: 048
     Dates: end: 20121115
  3. EXJADE [Suspect]
     Dosage: 1500 MG OR 1000 MG, THREE TIMES PER WEEK
     Route: 048
     Dates: start: 201007
  4. FOLIC ACID [Concomitant]
     Dosage: 5 MG, QD
     Route: 048
  5. CALTRATE [Concomitant]
     Dosage: 1300 MG, QD
     Route: 048
  6. VIT D [Concomitant]
     Dosage: 2000 U, BID
     Route: 048

REACTIONS (9)
  - Oropharyngeal pain [Unknown]
  - Fungal infection [Unknown]
  - Splenomegaly [Unknown]
  - Blood count abnormal [Unknown]
  - Malaise [Unknown]
  - Abdominal discomfort [Unknown]
  - Fatigue [Unknown]
  - Diarrhoea [Unknown]
  - Dyspepsia [Unknown]
